FAERS Safety Report 23682611 (Version 1)
Quarter: 2024Q1

REPORT INFORMATION
  Report Type: Spontaneous
  Country: US (occurrence: None)
  Receive Date: 20240327
  Receipt Date: 20240327
  Transmission Date: 20240410
  Serious: Yes (Disabling)
  Sender: FDA-Public Use
  Company Number: None

PATIENT
  Age: 30 Year
  Sex: Male
  Weight: 72 kg

DRUGS (1)
  1. FINASTERIDE 0.1% / MINOXIDIL 5% [Suspect]
     Active Substance: FINASTERIDE\MINOXIDIL
     Indication: Alopecia

REACTIONS (1)
  - Erectile dysfunction [None]

NARRATIVE: CASE EVENT DATE: 20220301
